FAERS Safety Report 5723989-7 (Version None)
Quarter: 2008Q2

REPORT INFORMATION
  Report Type: 
  Country: None (occurrence: None)
  Receive Date: 20080430
  Receipt Date: 20080429
  Transmission Date: 20081010
  Serious: Yes (Death)
  Sender: FDA-Public Use
  Company Number: PHHY2008AT06727

PATIENT
  Sex: Male

DRUGS (1)
  1. EXJADE [Suspect]
     Route: 065
     Dates: start: 20080401

REACTIONS (2)
  - CEREBRAL HAEMORRHAGE [None]
  - LYMPHADENOPATHY [None]
